FAERS Safety Report 8900203 (Version 1)
Quarter: 2012Q4

REPORT INFORMATION
  Report Type: 
  Country: US (occurrence: US)
  Receive Date: 20121108
  Receipt Date: 20121108
  Transmission Date: 20130627
  Serious: Yes (Hospitalization)
  Sender: FDA-Public Use
  Company Number: US-AMGEN-USASP2012037618

PATIENT
  Age: 52 Year
  Sex: Male
  Weight: 106.58 kg

DRUGS (4)
  1. ENBREL [Suspect]
     Indication: PRODUCT USED FOR UNKNOWN INDICATION
     Dosage: 50 mg, qwk
     Route: 058
  2. ENBREL [Suspect]
     Dosage: 50 mg, 2 times/wk
     Route: 058
  3. AMLODIPINE [Concomitant]
     Dosage: 2.5 mg, UNK
  4. DIOVAN [Concomitant]
     Dosage: 40 mg, UNK

REACTIONS (1)
  - Diverticulitis [Unknown]
